FAERS Safety Report 6792913-0 (Version None)
Quarter: 2010Q2

REPORT INFORMATION
  Report Type: 
  Country: None (occurrence: None)
  Receive Date: 20100624
  Receipt Date: 20081112
  Transmission Date: 20101027
  Serious: No
  Sender: FDA-Public Use
  Company Number: US-PFIZER INC-2008088162

PATIENT
  Age: 25 Year
  Sex: Male
  Weight: 81.65 kg

DRUGS (2)
  1. GEODON [Suspect]
     Indication: SCHIZOID PERSONALITY DISORDER
     Dates: start: 20080913
  2. ABILIFY [Concomitant]

REACTIONS (1)
  - PALPITATIONS [None]
